FAERS Safety Report 8435134-8 (Version None)
Quarter: 2012Q2

REPORT INFORMATION
  Report Type: 
  Country: None (occurrence: None)
  Receive Date: 20120614
  Receipt Date: 20120611
  Transmission Date: 20120825
  Serious: Yes (Other)
  Sender: FDA-Public Use
  Company Number: PHEH2011US00484

PATIENT
  Sex: Female

DRUGS (1)
  1. ZOMETA [Suspect]
     Indication: BREAST CANCER METASTATIC
     Route: 042
     Dates: start: 20030701, end: 20061201

REACTIONS (29)
  - INJURY [None]
  - TOOTHACHE [None]
  - LOOSE TOOTH [None]
  - LUMBAR SPINAL STENOSIS [None]
  - ROTATOR CUFF SYNDROME [None]
  - OSTEONECROSIS OF JAW [None]
  - HEPATIC LESION [None]
  - RENAL CYST [None]
  - THYROID NEOPLASM [None]
  - ARTHROPATHY [None]
  - PLEURAL FIBROSIS [None]
  - DEFORMITY [None]
  - EXPOSED BONE IN JAW [None]
  - INFECTION [None]
  - ANXIETY [None]
  - PLEURAL EFFUSION [None]
  - ATELECTASIS [None]
  - SPONDYLOLISTHESIS [None]
  - RHEUMATOID ARTHRITIS [None]
  - RIB FRACTURE [None]
  - DYSPNOEA [None]
  - LUNG NEOPLASM [None]
  - PHYSICAL DISABILITY [None]
  - METASTASES TO CENTRAL NERVOUS SYSTEM [None]
  - ENCEPHALOMALACIA [None]
  - HILAR LYMPHADENOPATHY [None]
  - PAIN [None]
  - UTERINE LEIOMYOMA [None]
  - METASTASES TO BONE [None]
